FAERS Safety Report 6416470-3 (Version None)
Quarter: 2009Q4

REPORT INFORMATION
  Report Type: 
  Country: None (occurrence: None)
  Receive Date: 20091027
  Receipt Date: 20091013
  Transmission Date: 20100525
  Serious: Yes (Other)
  Sender: FDA-Public Use
  Company Number: PHHY2009TW44150

PATIENT
  Age: 70 Year
  Sex: Female

DRUGS (1)
  1. ACLASTA [Suspect]
     Dosage: 5 MG/100 CC ONCE/YEAR
     Route: 042
     Dates: start: 20091008

REACTIONS (4)
  - HEADACHE [None]
  - PAIN [None]
  - PYREXIA [None]
  - TACHYCARDIA [None]
